FAERS Safety Report 5675221-0 (Version None)
Quarter: 2008Q2

REPORT INFORMATION
  Report Type: 
  Country: None (occurrence: None)
  Receive Date: 20080307
  Receipt Date: 20071130
  Transmission Date: 20081010
  Serious: Yes (Other)
  Sender: FDA-Public Use
  Company Number: T200701417

PATIENT
  Age: 34 Year
  Sex: Female
  Weight: 104.3 kg

DRUGS (5)
  1. OPTIRAY 350 [Suspect]
     Indication: COMPUTERISED TOMOGRAM
     Dosage: 85 ML, SINGLE, INTRAVENOUS
     Route: 042
     Dates: start: 20071114, end: 20071114
  2. OPTIRAY 350 [Suspect]
     Indication: COMPUTERISED TOMOGRAM ABDOMEN
     Dosage: 85 ML, SINGLE, INTRAVENOUS
     Route: 042
     Dates: start: 20071114, end: 20071114
  3. ALTACE [Concomitant]
  4. ATIVAN [Concomitant]
  5. COREG [Concomitant]

REACTIONS (2)
  - DYSPNOEA [None]
  - THROAT TIGHTNESS [None]
